FAERS Safety Report 6427477-4 (Version None)
Quarter: 2009Q4

REPORT INFORMATION
  Report Type: 
  Country: None (occurrence: None)
  Receive Date: 20091104
  Receipt Date: 20091022
  Transmission Date: 20100525
  Serious: Yes (Other)
  Sender: FDA-Public Use
  Company Number: PHEH2009US14326

PATIENT
  Age: 28 Year
  Sex: Male

DRUGS (1)
  1. EXFORGE [Suspect]
     Dosage: UNK, UNK

REACTIONS (4)
  - CONTUSION [None]
  - EPISTAXIS [None]
  - IDIOPATHIC THROMBOCYTOPENIC PURPURA [None]
  - PLATELET COUNT DECREASED [None]
